FAERS Safety Report 10034173 (Version 1)
Quarter: 2014Q1

REPORT INFORMATION
  Report Type: Spontaneous
  Country: US (occurrence: None)
  Receive Date: 20140324
  Receipt Date: 20140324
  Transmission Date: 20141002
  Serious: Yes (Disabling)
  Sender: FDA-Public Use
  Company Number: None

PATIENT
  Age: 32 Year
  Sex: Female
  Weight: 59.88 kg

DRUGS (1)
  1. RIFAMPIN [Suspect]
     Indication: BRUCELLA TEST POSITIVE
     Dosage: 2 PILLS ONCE DAILY TAKEN BY MOUTH
     Route: 048
     Dates: start: 20140313, end: 20140321

REACTIONS (7)
  - Drug withdrawal syndrome [None]
  - Mood swings [None]
  - Irritability [None]
  - Morbid thoughts [None]
  - Crying [None]
  - Anger [None]
  - Libido increased [None]
